FAERS Safety Report 14675088 (Version 1)
Quarter: 2018Q1

REPORT INFORMATION
  Report Type: Spontaneous
  Country: GB (occurrence: GB)
  Receive Date: 20180323
  Receipt Date: 20180323
  Transmission Date: 20180509
  Serious: Yes (Hospitalization, Other)
  Sender: FDA-Public Use
  Company Number: GB-PFIZER INC-2018113381

PATIENT
  Age: 72 Year
  Sex: Male
  Weight: 70 kg

DRUGS (12)
  1. TICAGRELOR. [Concomitant]
     Active Substance: TICAGRELOR
     Dosage: 2 DF, DAILY
     Dates: start: 20170802
  2. AMOXICILLIN. [Concomitant]
     Active Substance: AMOXICILLIN
     Dosage: 3 DF, DAILY
     Dates: start: 20180102, end: 20180109
  3. GLYCERYL TRINITRATE [Concomitant]
     Active Substance: NITROGLYCERIN
     Indication: CHEST PAIN
     Dosage: 1 DF, UNK PUFF
     Dates: start: 20170802
  4. LANSOPRAZOLE. [Concomitant]
     Active Substance: LANSOPRAZOLE
     Dosage: 1 DF, DAILY
     Dates: start: 20170802
  5. OTOMIZE [Concomitant]
     Active Substance: DEXAMETHASONE\NEOMYCIN SULFATE
     Dosage: USE AS DIRECTED
     Dates: start: 20180102, end: 20180112
  6. ACETYLSALICYLIC ACID [Concomitant]
     Active Substance: ASPIRIN
     Dosage: 1 DF, DAILY UNTIL FURTHER NOTICE
     Dates: start: 20170802
  7. RAMIPRIL. [Concomitant]
     Active Substance: RAMIPRIL
     Dosage: 1 DF, DAILY OMIT TEMPORARILY FOR A FEW DAYS...
     Dates: start: 20180109, end: 20180206
  8. CALAMINE [Concomitant]
     Active Substance: CALAMINE\FERRIC OXIDE RED\ZINC OXIDE
     Dosage: APPLY AS NEEDED
     Dates: start: 20180130, end: 20180204
  9. ATORVASTATIN [Suspect]
     Active Substance: ATORVASTATIN
     Dosage: UNK
     Dates: start: 20170802
  10. CO-DYDRAMOL [Concomitant]
     Active Substance: ACETAMINOPHEN\DIHYDROCODEINE
     Dosage: TAKE 1 OR 2 UP TO 4 TIMES/DAY
     Dates: start: 20180102, end: 20180114
  11. CLOBETASONE BUTYRATE [Concomitant]
     Active Substance: CLOBETASONE BUTYRATE
     Dosage: APPLY 1-2 TIMES/DAY FOR MAX 7 DAYS
     Dates: start: 20180130
  12. CLARITHROMYCIN. [Concomitant]
     Active Substance: CLARITHROMYCIN
     Dosage: 1 DF, UNK
     Dates: start: 20180109, end: 20180112

REACTIONS (2)
  - Drug-induced liver injury [Recovering/Resolving]
  - Jaundice [Unknown]

NARRATIVE: CASE EVENT DATE: 20180118
